FAERS Safety Report 7573908 (Version 4)
Quarter: 2015Q4

REPORT INFORMATION
  Report Type: Spontaneous
  Country: US (occurrence: US)
  Receive Date: 20100907
  Receipt Date: 20151113
  Transmission Date: 20160305
  Serious: Yes (Hospitalization)
  Sender: FDA-Public Use
  Company Number: US-BAYER-201032104NA

PATIENT
  Age: 28 Year
  Sex: Female
  Weight: 90.7 kg

DRUGS (6)
  1. PHENTERMINE. [Concomitant]
     Active Substance: PHENTERMINE
     Indication: WEIGHT DECREASED
     Dosage: UNK
     Dates: start: 20090409
  2. LEXAPRO [Concomitant]
     Active Substance: ESCITALOPRAM OXALATE
  3. AGGRENOX [Concomitant]
     Active Substance: ASPIRIN\DIPYRIDAMOLE
  4. TYLENOL [Concomitant]
     Active Substance: ACETAMINOPHEN
  5. PRAVACHOL [Concomitant]
     Active Substance: PRAVASTATIN SODIUM
  6. YAZ [Suspect]
     Active Substance: DROSPIRENONE\ETHINYL ESTRADIOL
     Dosage: UNK
     Route: 048
     Dates: start: 20070206, end: 20090419

REACTIONS (3)
  - Cerebral infarction [None]
  - Cerebrovascular accident [None]
  - Pain [None]

NARRATIVE: CASE EVENT DATE: 20090419
